FAERS Safety Report 6826447-1 (Version None)
Quarter: 2010Q3

REPORT INFORMATION
  Report Type: 
  Country: None (occurrence: None)
  Receive Date: 20100709
  Receipt Date: 20100701
  Transmission Date: 20110219
  Serious: Yes (Other)
  Sender: FDA-Public Use
  Company Number: US-JNJFOC-20100509718

PATIENT
  Age: 44 Year

DRUGS (1)
  1. ULTRAM [Suspect]
     Indication: PAIN
     Dosage: AS NEEDED
     Route: 048

REACTIONS (1)
  - DIPLEGIA [None]
